FAERS Safety Report 7172681-3 (Version None)
Quarter: 2010Q4

REPORT INFORMATION
  Report Type: 
  Country: None (occurrence: None)
  Receive Date: 20101217
  Receipt Date: 20100308
  Transmission Date: 20110411
  Serious: No
  Sender: FDA-Public Use
  Company Number: US-AMGEN-TCS390618

PATIENT

DRUGS (6)
  1. ENBREL [Suspect]
     Indication: JUVENILE ARTHRITIS
     Dosage: 50 MG, QWK
     Route: 058
     Dates: start: 20091210, end: 20100104
  2. METHOTREXATE [Concomitant]
     Dosage: UNK UNK, UNK
     Dates: start: 20091005
  3. FOLINIC ACID [Concomitant]
     Dosage: UNK UNK, UNK
     Dates: start: 20091005
  4. NAPROXEN [Concomitant]
     Dosage: UNK UNK, UNK
     Dates: start: 20091005
  5. METHYLPHENIDATE HCL [Concomitant]
     Dosage: UNK UNK, UNK
     Dates: start: 20080427
  6. OVULEN [Concomitant]
     Dosage: UNK UNK, UNK
     Dates: start: 20090904

REACTIONS (2)
  - HYPERSENSITIVITY [None]
  - PRURITUS GENERALISED [None]
